FAERS Safety Report 6998007-3 (Version None)
Quarter: 2010Q3

REPORT INFORMATION
  Report Type: 
  Country: None (occurrence: None)
  Receive Date: 20100920
  Receipt Date: 20100517
  Transmission Date: 20110219
  Serious: Yes (Hospitalization)
  Sender: FDA-Public Use
  Company Number: US-ASTRAZENECA-2007UW08285

PATIENT
  Age: 19377 Day
  Sex: Female

DRUGS (4)
  1. SEROQUEL [Suspect]
     Dosage: 25 TO 400 MG TAKE 1/2 TO 1 TABLET PO BID PRN
     Route: 048
     Dates: start: 20020716
  2. ZOLOFT [Concomitant]
     Dosage: TAKE ONE TABLET HS
     Route: 048
     Dates: start: 20020801
  3. TRAZODONE HCL [Concomitant]
     Dosage: TAKE 3 QHS
     Route: 048
     Dates: start: 20020716
  4. ATENOLOL [Concomitant]

REACTIONS (1)
  - DIABETES MELLITUS [None]
